FAERS Safety Report 20189336 (Version 1)
Quarter: 2021Q4

REPORT INFORMATION
  Report Type: Spontaneous
  Country: FR (occurrence: FR)
  Receive Date: 20211215
  Receipt Date: 20211215
  Transmission Date: 20220303
  Serious: Yes (Other)
  Sender: FDA-Public Use
  Company Number: FR-NOVARTISPH-NVSC2021FR286672

PATIENT
  Age: 74 Year
  Sex: Male

DRUGS (2)
  1. GLIVEC [Suspect]
     Active Substance: IMATINIB MESYLATE
     Indication: Product used for unknown indication
     Dosage: 400 MG, QD (5 DAYS IN A WEEK)
     Route: 065
     Dates: start: 202105, end: 20211122
  2. GLIVEC [Suspect]
     Active Substance: IMATINIB MESYLATE
     Dosage: 100 MG, QD
     Route: 065
     Dates: start: 20211122

REACTIONS (3)
  - Choking [Unknown]
  - Dysphagia [Unknown]
  - Wrong technique in product usage process [Unknown]
